FAERS Safety Report 11055483 (Version 4)
Quarter: 2015Q3

REPORT INFORMATION
  Report Type: Spontaneous
  Country: US (occurrence: US)
  Receive Date: 20150422
  Receipt Date: 20150727
  Transmission Date: 20151125
  Serious: Yes (Hospitalization)
  Sender: FDA-Public Use
  Company Number: US-PFIZER INC-2015137101

PATIENT
  Age: 66 Year
  Sex: Female
  Weight: 78.5 kg

DRUGS (8)
  1. VITAMIN D3 CALCIUM [Concomitant]
     Indication: BONE DISORDER
     Dosage: VITAMIN D3 800 IU/CALCIUM 600 MG; 1 TABLET, 2X/DAY
     Route: 048
     Dates: start: 201206
  2. IBRANCE [Suspect]
     Active Substance: PALBOCICLIB
     Indication: BREAST CANCER STAGE IV
     Dosage: 125 MG, 1X/DAY (21 DAYS ON, 7 DAYS OFF)
     Route: 048
     Dates: start: 20141126
  3. IBRANCE [Suspect]
     Active Substance: PALBOCICLIB
     Dosage: 100 MG, DAILY, CYCLIC
  4. METOPROLOL [Concomitant]
     Active Substance: METOPROLOL
     Indication: ATRIAL FIBRILLATION
     Dosage: 50 MG, 2X/DAY
     Route: 048
     Dates: start: 20141017
  5. MAGNESIUM [Concomitant]
     Active Substance: MAGNESIUM
     Dosage: 50 MG, 2X/DAY
     Dates: start: 201206
  6. IBRANCE [Suspect]
     Active Substance: PALBOCICLIB
     Dosage: 75 MG, CYCLIC
     Dates: start: 201503
  7. FEMARA [Concomitant]
     Active Substance: LETROZOLE
     Indication: NEOPLASM MALIGNANT
     Dosage: 2.5 MG, 1X/DAY
     Route: 048
     Dates: start: 20141126
  8. METOPROLOL [Concomitant]
     Active Substance: METOPROLOL
     Dosage: UNK

REACTIONS (8)
  - Seasonal allergy [Recovered/Resolved]
  - Infection [Recovered/Resolved]
  - Oropharyngeal pain [Unknown]
  - Neutrophil count decreased [Recovered/Resolved]
  - White blood cell count decreased [Not Recovered/Not Resolved]
  - Ear pain [Recovered/Resolved]
  - Platelet count decreased [Recovered/Resolved]
  - Oropharyngeal pain [Recovered/Resolved]

NARRATIVE: CASE EVENT DATE: 20141126
